FAERS Safety Report 12835790 (Version 1)
Quarter: 2016Q4

REPORT INFORMATION
  Report Type: Spontaneous
  Country: US (occurrence: US)
  Receive Date: 20161007
  Receipt Date: 20161007
  Transmission Date: 20170207
  Serious: Yes (Death, Hospitalization)
  Sender: FDA-Public Use
  Company Number: None

PATIENT
  Age: 71 Year
  Sex: Male
  Weight: 95.2 kg

DRUGS (2)
  1. WARFARIN [Suspect]
     Active Substance: WARFARIN
     Indication: PULMONARY EMBOLISM
     Dates: start: 20050601, end: 20160908
  2. WARFARIN [Suspect]
     Active Substance: WARFARIN
     Indication: DEEP VEIN THROMBOSIS
     Dates: start: 20050601, end: 20160908

REACTIONS (5)
  - Tachypnoea [None]
  - Cerebral haemorrhage [None]
  - Unresponsive to stimuli [None]
  - Hypertension [None]
  - International normalised ratio increased [None]

NARRATIVE: CASE EVENT DATE: 20160908
